FAERS Safety Report 25834827 (Version 2)
Quarter: 2025Q4

REPORT INFORMATION
  Report Type: Spontaneous
  Country: US (occurrence: US)
  Receive Date: 20250923
  Receipt Date: 20251030
  Transmission Date: 20260117
  Serious: No
  Sender: BRISTOL-MYERS SQUIBB COMPANY
  Company Number: US-BRISTOL-MYERS SQUIBB COMPANY-2025-130262

PATIENT
  Age: 34 Year
  Sex: Male

DRUGS (3)
  1. KRAZATI [Suspect]
     Active Substance: ADAGRASIB
     Indication: Product used for unknown indication
     Route: 048
  2. KRAZATI [Suspect]
     Active Substance: ADAGRASIB
     Dosage: FREQUENCY: 3 TABLETS AT 8AM, 4PM, AND 12PM BEING 3 TABLETS 3 TIMES A DAY
     Route: 048
  3. KRAZATI [Suspect]
     Active Substance: ADAGRASIB
     Dosage: TAKE 3 TABLETS BY MOUTH TWICE A DAY
     Route: 048

REACTIONS (5)
  - Treatment noncompliance [Unknown]
  - Diarrhoea [Unknown]
  - Malaise [Unknown]
  - Acne [Unknown]
  - Flatulence [Unknown]
